FAERS Safety Report 11294745 (Version 1)
Quarter: 2015Q3

REPORT INFORMATION
  Report Type: Spontaneous
  Country: US (occurrence: None)
  Receive Date: 20150722
  Receipt Date: 20150722
  Transmission Date: 20151125
  Serious: No
  Sender: FDA-Public Use
  Company Number: None

PATIENT
  Age: 43 Year
  Sex: Male
  Weight: 74.84 kg

DRUGS (3)
  1. SEROQUEL [Suspect]
     Active Substance: QUETIAPINE FUMARATE
     Indication: BIPOLAR DISORDER
     Dates: start: 20150515, end: 20150720
  2. DEPAKOTE [Concomitant]
     Active Substance: DIVALPROEX SODIUM
  3. SEROQUEL [Suspect]
     Active Substance: QUETIAPINE FUMARATE
     Indication: INSOMNIA
     Dates: start: 20150515, end: 20150720

REACTIONS (10)
  - Fatigue [None]
  - Drug dependence [None]
  - Fear [None]
  - Paranoia [None]
  - Somnolence [None]
  - Activities of daily living impaired [None]
  - Photophobia [None]
  - Therapy change [None]
  - Depressed mood [None]
  - Tremor [None]

NARRATIVE: CASE EVENT DATE: 20150515
